FAERS Safety Report 11621880 (Version 2)
Quarter: 2015Q4

REPORT INFORMATION
  Report Type: Report from Study
  Country: US (occurrence: US)
  Receive Date: 20151013
  Receipt Date: 20151015
  Transmission Date: 20160304
  Serious: Yes (Death, Other)
  Sender: FDA-Public Use
  Company Number: US-ABBVIE-15K-163-1480277-00

PATIENT
  Sex: Female

DRUGS (1)
  1. HUMIRA [Suspect]
     Active Substance: ADALIMUMAB
     Indication: PSORIASIS
     Route: 058
     Dates: start: 2010, end: 2013

REACTIONS (4)
  - Pneumonia [Recovered/Resolved]
  - Dementia [Fatal]
  - Myoclonus [Unknown]
  - Seizure [Unknown]

NARRATIVE: CASE EVENT DATE: 2010
